FAERS Safety Report 15735234 (Version 1)
Quarter: 2018Q4

REPORT INFORMATION
  Report Type: Report from Study
  Country: US (occurrence: US)
  Receive Date: 20181218
  Receipt Date: 20181218
  Transmission Date: 20190205
  Serious: Yes (Hospitalization, Other)
  Sender: FDA-Public Use
  Company Number: US-SAKK-2018SA338472AA

PATIENT
  Age: 59 Year
  Sex: Male

DRUGS (3)
  1. INSULIN GLARGINE [Suspect]
     Active Substance: INSULIN GLARGINE
     Indication: DIABETES MELLITUS
     Dosage: 30 UNITS IN THE AM AND 20 UNITS AT NIGHT
     Route: 058
  2. INSULIN GLULISINE [Suspect]
     Active Substance: INSULIN GLULISINE
     Indication: DIABETES MELLITUS
     Dosage: SLIDING DOSE SCALE
     Route: 058
  3. INSULIN GLARGINE [Suspect]
     Active Substance: INSULIN GLARGINE
     Indication: DIABETES MELLITUS
     Dosage: 30 UNITS IN THE AM AND 20 UNITS AT NIGHT
     Route: 058
     Dates: start: 2012

REACTIONS (6)
  - Hypoaesthesia [Not Recovered/Not Resolved]
  - Product dose omission [Unknown]
  - Surgery [Unknown]
  - Neuropathy peripheral [Not Recovered/Not Resolved]
  - Pain in extremity [Not Recovered/Not Resolved]
  - Burns third degree [Not Recovered/Not Resolved]

NARRATIVE: CASE EVENT DATE: 20180530
